FAERS Safety Report 20547407 (Version 1)
Quarter: 2022Q1

REPORT INFORMATION
  Report Type: Spontaneous
  Country: FR (occurrence: FR)
  Receive Date: 20220303
  Receipt Date: 20220303
  Transmission Date: 20220423
  Serious: Yes (Hospitalization)
  Sender: FDA-Public Use
  Company Number: None

PATIENT
  Age: 49 Year
  Sex: Male

DRUGS (1)
  1. DOXYCYCLINE [Suspect]
     Active Substance: DOXYCYCLINE
     Indication: Rosacea
     Dosage: 100 MG, QD
     Route: 048
     Dates: start: 20211221, end: 20220112

REACTIONS (3)
  - Diffuse vasculitis [Recovering/Resolving]
  - Antineutrophil cytoplasmic antibody positive [Recovering/Resolving]
  - Mucocutaneous candidiasis [Recovered/Resolved]

NARRATIVE: CASE EVENT DATE: 20220111
